FAERS Safety Report 18873053 (Version 3)
Quarter: 2021Q2

REPORT INFORMATION
  Report Type: Spontaneous
  Country: DE (occurrence: DE)
  Receive Date: 20210210
  Receipt Date: 20210412
  Transmission Date: 20210717
  Serious: Yes (Hospitalization, Other)
  Sender: FDA-Public Use
  Company Number: DE-BRACCO-2020DE04820

PATIENT
  Age: 46 Year
  Sex: Female

DRUGS (9)
  1. CIPROFLOXACIN. [Suspect]
     Active Substance: CIPROFLOXACIN
     Indication: BACTERIAL INFECTION
     Dosage: 500 MG, BID
     Route: 048
     Dates: start: 20191213, end: 20191223
  2. VITAMIN B12 [Concomitant]
     Active Substance: CYANOCOBALAMIN
     Indication: NEUROPATHY PERIPHERAL
     Dosage: 2ML, SINGLE DOSE
     Route: 042
     Dates: start: 20200111, end: 20200111
  3. PASCORBIN [Concomitant]
     Active Substance: ASCORBIC ACID
     Indication: DETOXIFICATION
     Dosage: 2.5 ML, SINGLE DOSE
     Route: 042
     Dates: start: 20200111, end: 20200111
  4. DYSTO LOGES N [Concomitant]
     Indication: DETOXIFICATION
     Dosage: 2ML,SINGLE DOSE
     Route: 042
     Dates: start: 20200111, end: 20200111
  5. PROHANCE [Suspect]
     Active Substance: GADOTERIDOL
     Indication: DIAGNOSTIC PROCEDURE
     Dosage: UNK, SINGLE
     Route: 042
     Dates: start: 20200118, end: 20200118
  6. GASTROLUX (DIATRIZOATE MEGLUMINE\DIATRIZOATE SODIUM) [Suspect]
     Active Substance: DIATRIZOATE MEGLUMINE\DIATRIZOATE SODIUM
     Indication: DIAGNOSTIC PROCEDURE
     Dosage: UNK, SINGLE
     Route: 048
     Dates: start: 20200624, end: 20200624
  7. FOLIC ACID. [Concomitant]
     Active Substance: FOLIC ACID
     Indication: NEUROPATHY PERIPHERAL
     Dosage: 5MG, SINGLE DOSE, EXACT DOSE UNKNOWN
     Route: 042
     Dates: start: 20200111, end: 20200111
  8. PANTOPRAZOLE [Concomitant]
     Active Substance: PANTOPRAZOLE
     Dosage: UNK
  9. SPASCUPREEL                        /07494301/ [Concomitant]
     Indication: DETOXIFICATION
     Dosage: 1.1 ML,SINGLE DOSE
     Route: 042
     Dates: start: 20200111, end: 20200111

REACTIONS (23)
  - Insomnia [Unknown]
  - Dry mouth [Unknown]
  - Tachycardia [Unknown]
  - Rash [Recovered/Resolved]
  - Hypoaesthesia [Unknown]
  - Muscle spasticity [Unknown]
  - Hyperaesthesia [Unknown]
  - Dry mouth [Unknown]
  - Feeling cold [Unknown]
  - Muscle twitching [Unknown]
  - Dysphagia [Unknown]
  - Hypoaesthesia [Unknown]
  - Myalgia [Unknown]
  - Oropharyngeal pain [Unknown]
  - Transaminases increased [Recovered/Resolved]
  - Paraesthesia [Unknown]
  - Neck pain [Recovered/Resolved]
  - Ageusia [Unknown]
  - Disturbance in attention [Unknown]
  - Diarrhoea [Recovered/Resolved]
  - Dizziness [Unknown]
  - Hypoaesthesia [Unknown]
  - Somnolence [Unknown]

NARRATIVE: CASE EVENT DATE: 20191231
